FAERS Safety Report 8093235-0 (Version None)
Quarter: 2012Q1

REPORT INFORMATION
  Report Type: 
  Country: None (occurrence: None)
  Receive Date: 20120128
  Receipt Date: 20111025
  Transmission Date: 20120608
  Serious: No
  Sender: FDA-Public Use
  Company Number: US-ABBOTT-11P-163-0722922-00

PATIENT
  Sex: Female
  Weight: 102.15 kg

DRUGS (14)
  1. FOLIC ACID [Concomitant]
     Indication: VITAMIN SUPPLEMENTATION
  2. PROZAC [Concomitant]
     Indication: DEPRESSION
  3. TENORMIN [Concomitant]
     Indication: HYPERTENSION
  4. DIAZIDE [Concomitant]
     Indication: HYPERTENSION
  5. PRAVACHOL [Concomitant]
     Indication: BLOOD CHOLESTEROL INCREASED
  6. ESTRADIOL [Concomitant]
     Indication: SUPPLEMENTATION THERAPY
  7. VERAPAMIL [Concomitant]
     Indication: HYPERTENSION
  8. XANAX [Concomitant]
     Indication: INSOMNIA
     Dosage: AT BEDTIME PRN
  9. HUMIRA [Suspect]
     Indication: RHEUMATOID ARTHRITIS
     Route: 058
     Dates: start: 20110222
  10. FLEXERIL [Concomitant]
     Indication: FIBROMYALGIA
  11. UNKNOWN BLOOD PRESSURE MEDICATION [Concomitant]
     Indication: HYPERTENSION
  12. METHOTREXATE [Concomitant]
     Indication: RHEUMATOID ARTHRITIS
  13. FLEXERIL [Concomitant]
     Indication: INSOMNIA
     Dosage: 2  TABS AT NIGHT
  14. PROZAC [Concomitant]

REACTIONS (3)
  - INFECTION [None]
  - UPPER RESPIRATORY TRACT INFECTION [None]
  - TOOTH INFECTION [None]
